FAERS Safety Report 8105333-3 (Version None)
Quarter: 2012Q1

REPORT INFORMATION
  Report Type: 
  Country: None (occurrence: None)
  Receive Date: 20120201
  Receipt Date: 20120118
  Transmission Date: 20120608
  Serious: Yes (Other)
  Sender: FDA-Public Use
  Company Number: IR-WATSON-2012-00911

PATIENT
  Age: 74 Year
  Sex: Female

DRUGS (1)
  1. ATENOLOL [Suspect]
     Indication: PRODUCT USED FOR UNKNOWN INDICATION
     Dosage: UNK
     Route: 065

REACTIONS (4)
  - NAUSEA [None]
  - VERTIGO [None]
  - VOMITING [None]
  - HEADACHE [None]
